FAERS Safety Report 6136162-8 (Version None)
Quarter: 2009Q1

REPORT INFORMATION
  Report Type: 
  Country: None (occurrence: None)
  Receive Date: 20090330
  Receipt Date: 20090317
  Transmission Date: 20090719
  Serious: Yes (Death, Life-Threatening, Hospitalization)
  Sender: FDA-Public Use
  Company Number: MX-MEDIMMUNE-MEDI-0008126

PATIENT
  Age: 58 Year
  Sex: Male

DRUGS (4)
  1. ETHYOL [Suspect]
     Indication: RADIOTHERAPY
     Route: 058
  2. RADIATION THERAPY [Concomitant]
  3. PREDNISONE [Concomitant]
  4. NYSTATINE [Concomitant]

REACTIONS (2)
  - PNEUMONIA [None]
  - SKIN INJURY [None]
